FAERS Safety Report 10109806 (Version 2)
Quarter: 2014Q2

REPORT INFORMATION
  Report Type: Spontaneous
  Country: CH (occurrence: CH)
  Receive Date: 20140425
  Receipt Date: 20140425
  Transmission Date: 20141212
  Serious: Yes (Disabling, Other)
  Sender: FDA-Public Use
  Company Number: CH-BAYER-2014-053641

PATIENT
  Age: 59 Year
  Sex: Female
  Weight: 55 kg

DRUGS (4)
  1. AVALOX [Suspect]
     Indication: CHRONIC OBSTRUCTIVE PULMONARY DISEASE
     Dosage: UNK
     Dates: start: 20140407, end: 20140408
  2. AVALOX [Suspect]
     Indication: BRONCHITIS
  3. SYMBICORT [Concomitant]
     Dosage: 400/12
  4. VENTOLIN [Concomitant]

REACTIONS (4)
  - Hallucination, auditory [Recovered/Resolved]
  - Visual impairment [Unknown]
  - VIth nerve paresis [None]
  - Diplopia [None]
